FAERS Safety Report 6359037-8 (Version None)
Quarter: 2009Q3

REPORT INFORMATION
  Report Type: 
  Country: None (occurrence: None)
  Receive Date: 20090917
  Receipt Date: 20090909
  Transmission Date: 20100115
  Serious: Yes (Hospitalization)
  Sender: FDA-Public Use
  Company Number: US-BIOGENIDEC-2009BI025552

PATIENT
  Age: 19 Year
  Sex: Male

DRUGS (1)
  1. TYSABRI [Suspect]
     Indication: CROHN'S DISEASE
     Route: 042
     Dates: start: 20090311

REACTIONS (4)
  - CROHN'S DISEASE [None]
  - DECREASED APPETITE [None]
  - GALLBLADDER DISORDER [None]
  - OROPHARYNGEAL PAIN [None]
